FAERS Safety Report 7582460-0 (Version None)
Quarter: 2011Q2

REPORT INFORMATION
  Report Type: 
  Country: None (occurrence: None)
  Receive Date: 20110623
  Receipt Date: 20110609
  Transmission Date: 20111010
  Serious: Yes (Other)
  Sender: FDA-Public Use
  Company Number: 1000021676

PATIENT
  Age: 79 Year
  Sex: Female

DRUGS (2)
  1. DONEPEZIL HCL [Suspect]
     Indication: DEMENTIA ALZHEIMER'S TYPE
     Dosage: 5 MG, 5 MG, 1 IN 1 D);
  2. MEMANTINE [Suspect]
     Indication: DEMENTIA ALZHEIMER'S TYPE
     Dosage: 5 MG (5 MG, 1 IN 1 D),

REACTIONS (5)
  - TRANSAMINASES INCREASED [None]
  - ASPARTATE AMINOTRANSFERASE INCREASED [None]
  - POVERTY OF SPEECH [None]
  - ALANINE AMINOTRANSFERASE INCREASED [None]
  - ABASIA [None]
